FAERS Safety Report 6730017-3 (Version None)
Quarter: 2010Q2

REPORT INFORMATION
  Report Type: 
  Country: None (occurrence: None)
  Receive Date: 20100518
  Receipt Date: 20100512
  Transmission Date: 20101027
  Serious: Yes (Hospitalization)
  Sender: FDA-Public Use
  Company Number: JP-B.I. PHARMACEUTICALS,INC./RIDGEFIELD-2010-BP-05318NB

PATIENT
  Age: 68 Year
  Sex: Male

DRUGS (12)
  1. MICARDIS [Suspect]
     Indication: HYPERTENSION
     Dosage: 40 MG
     Route: 048
     Dates: start: 20090101, end: 20100426
  2. LIPITOR [Suspect]
     Dosage: 10 MG
     Route: 048
     Dates: start: 20090101, end: 20100507
  3. PLAVIX [Suspect]
     Route: 048
  4. EPADEL [Concomitant]
     Dosage: 600 MG
     Route: 048
  5. BUFFERIN [Concomitant]
     Dosage: 81 MG
     Route: 048
     Dates: start: 20090101, end: 20100507
  6. TAKEPRON [Concomitant]
     Dosage: 15 MG
     Route: 048
     Dates: start: 20090101, end: 20100507
  7. ESCARD COMBINATION TABLETS [Concomitant]
     Dosage: 1DF
     Route: 048
     Dates: start: 20090101, end: 20100507
  8. EPADEL [Concomitant]
     Dosage: 600 MCG
     Route: 048
     Dates: start: 20090101, end: 20100507
  9. FRANDOL S [Concomitant]
     Dosage: 40 MG
     Route: 062
     Dates: start: 20090101, end: 20100507
  10. ARTIST [Concomitant]
     Dosage: 5 MG
     Route: 048
     Dates: start: 20090101, end: 20100507
  11. LASIX [Concomitant]
     Dosage: 40 MG
     Route: 048
     Dates: start: 20090101, end: 20100507
  12. ALDACTONE [Concomitant]
     Dosage: 25 MG
     Route: 048
     Dates: start: 20090101, end: 20100507

REACTIONS (2)
  - HEPATIC FUNCTION ABNORMAL [None]
  - PNEUMONIA [None]
